FAERS Safety Report 22247499 (Version 1)
Quarter: 2023Q2

REPORT INFORMATION
  Report Type: Spontaneous
  Country: RU (occurrence: RU)
  Receive Date: 20230425
  Receipt Date: 20230425
  Transmission Date: 20230722
  Serious: Yes (Other)
  Sender: FDA-Public Use
  Company Number: None

PATIENT
  Age: 58 Year
  Sex: Female
  Weight: 58.7 kg

DRUGS (4)
  1. FIASP [Suspect]
     Active Substance: INSULIN ASPART
     Dosage: DOSE INCREASED 1.5 TIMES
     Dates: end: 20220515
  2. FIASP [Suspect]
     Active Substance: INSULIN ASPART
     Indication: Type 1 diabetes mellitus
     Dosage: 21 IU
     Dates: start: 20220424
  3. INSULIN ASPART [Suspect]
     Active Substance: INSULIN ASPART
     Indication: Type 1 diabetes mellitus
     Dosage: 21 IU
     Route: 058
     Dates: start: 20220729, end: 20220818
  4. INSULIN HUMAN [Suspect]
     Active Substance: INSULIN HUMAN
     Indication: Type 1 diabetes mellitus
     Dosage: 21 IU
     Route: 058
     Dates: start: 20221112, end: 20221201

REACTIONS (4)
  - Blood glucose increased [Unknown]
  - Thirst [Unknown]
  - Dry mouth [Unknown]
  - Drug ineffective [Recovering/Resolving]
